FAERS Safety Report 5150035-9 (Version None)
Quarter: 2006Q4

REPORT INFORMATION
  Report Type: 
  Country: None (occurrence: None)
  Receive Date: 20061108
  Receipt Date: 20061023
  Transmission Date: 20070319
  Serious: Yes (Death, Life-Threatening, Hospitalization)
  Sender: FDA-Public Use
  Company Number: US-2006-030371

PATIENT
  Age: 59 Year
  Sex: Male

DRUGS (4)
  1. FLUDARABINE PHOSPHATE [Suspect]
     Indication: STEM CELL TRANSPLANT
     Dosage: 30MG/M2 DAYS -4, -3, -2, INTRAVENOUS; SEE IMAGE
     Route: 042
     Dates: start: 20060520, end: 20060522
  2. FLUDARABINE PHOSPHATE [Suspect]
     Indication: STEM CELL TRANSPLANT
     Dosage: 30MG/M2 DAYS -4, -3, -2, INTRAVENOUS; SEE IMAGE
     Route: 042
     Dates: start: 20060802
  3. CYCLOSPORINE [Suspect]
     Indication: PROPHYLAXIS AGAINST TRANSPLANT REJECTION
     Dosage: 5MG/KG12H TO DAY +180
     Dates: start: 20060521
  4. MYCOPHENOLATE MOFETIL [Suspect]
     Indication: IMMUNOSUPPRESSION
     Dosage: 15MG/KG Q8H TO DAY +100, ORAL
     Route: 048
     Dates: start: 20060524

REACTIONS (16)
  - ACUTE GRAFT VERSUS HOST DISEASE IN LIVER [None]
  - ATRIAL FIBRILLATION [None]
  - BLOOD STEM CELL TRANSPLANT FAILURE [None]
  - CHOLANGITIS [None]
  - DRUG INEFFECTIVE [None]
  - DRUG TOXICITY [None]
  - FUNGAL INFECTION [None]
  - GASTROINTESTINAL HAEMORRHAGE [None]
  - HEPATIC ENCEPHALOPATHY [None]
  - HEPATIC FAILURE [None]
  - LUNG INFILTRATION [None]
  - OXYGEN CONSUMPTION INCREASED [None]
  - PLEURAL EFFUSION [None]
  - RENAL FAILURE [None]
  - RESPIRATORY DISTRESS [None]
  - SOFT TISSUE INFECTION [None]
